FAERS Safety Report 12619331 (Version 1)
Quarter: 2016Q3

REPORT INFORMATION
  Report Type: Spontaneous
  Country: FR (occurrence: FR)
  Receive Date: 20160803
  Receipt Date: 20160803
  Transmission Date: 20161109
  Serious: Yes (Hospitalization)
  Sender: FDA-Public Use
  Company Number: FR-BAYER-2016-148903

PATIENT
  Age: 35 Year
  Sex: Female

DRUGS (5)
  1. CORTANCYL [Concomitant]
     Active Substance: PREDNISONE
  2. IMUREL [Concomitant]
     Active Substance: AZATHIOPRINE SODIUM
  3. PREVISCAN [Concomitant]
     Active Substance: FLUINDIONE
  4. YAZ [Suspect]
     Active Substance: DROSPIRENONE\ETHINYL ESTRADIOL
     Indication: ORAL CONTRACEPTION
     Dosage: UNK
     Route: 048
     Dates: end: 2012
  5. PLAQUENIL [Concomitant]
     Active Substance: HYDROXYCHLOROQUINE SULFATE

REACTIONS (1)
  - Thrombosis [Recovered/Resolved]

NARRATIVE: CASE EVENT DATE: 2012
